FAERS Safety Report 9352646 (Version 1)
Quarter: 2013Q2

REPORT INFORMATION
  Report Type: Spontaneous
  Country: SE (occurrence: SE)
  Receive Date: 20130618
  Receipt Date: 20130618
  Transmission Date: 20140414
  Serious: Yes (Other)
  Sender: FDA-Public Use
  Company Number: SE-ROCHE-1237806

PATIENT
  Sex: Male

DRUGS (1)
  1. COPEGUS [Suspect]
     Indication: ACUTE HEPATITIS C
     Route: 065
     Dates: end: 20120822

REACTIONS (2)
  - Cerebral haemorrhage [Unknown]
  - Hepatotoxicity [Unknown]
